FAERS Safety Report 22212291 (Version 2)
Quarter: 2023Q2

REPORT INFORMATION
  Report Type: Spontaneous
  Country: CZ (occurrence: CZ)
  Receive Date: 20230414
  Receipt Date: 20230426
  Transmission Date: 20230721
  Serious: No
  Sender: FDA-Public Use
  Company Number: CZ-SA-SAC20230405000519

PATIENT
  Age: 13 Year
  Sex: Male
  Weight: 93 kg

DRUGS (15)
  1. DUPIXENT [Suspect]
     Active Substance: DUPILUMAB
     Indication: Dermatitis
     Dosage: 600 MG, 1X
     Dates: start: 20220713, end: 20220713
  2. DUPIXENT [Suspect]
     Active Substance: DUPILUMAB
     Indication: Dermatitis atopic
     Dosage: 300 MG, QOW
     Dates: end: 20230323
  3. CYCLOSPORINE [Concomitant]
     Active Substance: CYCLOSPORINE
     Dosage: UNK
  4. ALLOPURINOL [Concomitant]
     Active Substance: ALLOPURINOL
     Dosage: UNK
  5. LACTOBACIL [Concomitant]
  6. PARAFFIN [Concomitant]
     Active Substance: PARAFFIN
  7. XYZAL [Concomitant]
     Active Substance: LEVOCETIRIZINE DIHYDROCHLORIDE
  8. SEPTONEX [ALKONIUM BROMIDE] [Concomitant]
  9. PROTOPIC [Concomitant]
     Active Substance: TACROLIMUS
  10. ELIDEL [Concomitant]
     Active Substance: PIMECROLIMUS
  11. LOCOID [Concomitant]
     Active Substance: HYDROCORTISONE BUTYRATE
  12. TRIAMCINOLONE [Concomitant]
     Active Substance: TRIAMCINOLONE
  13. METHYLPREDNISOLONE ACEPONATE [Concomitant]
     Active Substance: METHYLPREDNISOLONE ACEPONATE
  14. BETAMETHASONE DIPROPIONATE\GENTAMICIN SULFATE [Concomitant]
     Active Substance: BETAMETHASONE DIPROPIONATE\GENTAMICIN SULFATE
  15. VENTOLIN [Concomitant]
     Active Substance: ALBUTEROL SULFATE
     Indication: Asthma

REACTIONS (14)
  - Inflammation [Unknown]
  - Dermatitis psoriasiform [Unknown]
  - Lichenification [Unknown]
  - Becker^s naevus [Unknown]
  - Skin weeping [Unknown]
  - Condition aggravated [Unknown]
  - Nodule [Unknown]
  - Pruritus [Unknown]
  - Condition aggravated [Unknown]
  - Erythema [Unknown]
  - Eczema [Unknown]
  - Blepharitis [Unknown]
  - Drug ineffective for unapproved indication [Unknown]
  - Drug effect less than expected [Unknown]

NARRATIVE: CASE EVENT DATE: 20220713
